FAERS Safety Report 18302152 (Version 1)
Quarter: 2020Q3

REPORT INFORMATION
  Report Type: Spontaneous
  Country: US (occurrence: US)
  Receive Date: 20200923
  Receipt Date: 20200923
  Transmission Date: 20201103
  Serious: Yes (Other)
  Sender: FDA-Public Use
  Company Number: US-ASTELLAS-2020US032596

PATIENT
  Age: 81 Year
  Sex: Male

DRUGS (2)
  1. PADCEV [Suspect]
     Active Substance: ENFORTUMAB VEDOTIN-EJFV
     Indication: TRANSITIONAL CELL CARCINOMA
     Dosage: UNK UNK, UNKNOWN FREQ.
     Route: 065
     Dates: start: 202002, end: 202006
  2. PEMBROLIZUMAB. [Concomitant]
     Active Substance: PEMBROLIZUMAB
     Indication: TRANSITIONAL CELL CARCINOMA
     Dosage: UNK UNK, UNKNOWN FREQ.
     Route: 065
     Dates: start: 201910

REACTIONS (3)
  - Peripheral sensory neuropathy [Unknown]
  - Hyperglycaemia [Unknown]
  - General physical health deterioration [Unknown]

NARRATIVE: CASE EVENT DATE: 202006
